FAERS Safety Report 6532415-X (Version None)
Quarter: 2010Q1

REPORT INFORMATION
  Report Type: 
  Country: None (occurrence: None)
  Receive Date: 20100108
  Receipt Date: 20100104
  Transmission Date: 20100710
  Serious: Yes (Death, Hospitalization, Other)
  Sender: FDA-Public Use
  Company Number: KR-ELI_LILLY_AND_COMPANY-KR200909003490

PATIENT
  Age: 51 Year
  Sex: Male

DRUGS (12)
  1. HUMALOG MIX 75/25 [Suspect]
     Indication: TYPE 2 DIABETES MELLITUS
     Dosage: 66 IU, DAILY (1/D)
     Route: 058
     Dates: start: 20090828
  2. HUMALOG MIX 75/25 [Suspect]
     Dosage: 90 IU, DAILY (1/D)
     Route: 058
     Dates: start: 20090905
  3. LANTUS [Concomitant]
  4. ASPIRIN [Concomitant]
     Dosage: 1000 MG, UNK
  5. LIPITOR [Concomitant]
     Dosage: 10 MG, UNK
  6. MULTI-VITAMIN [Concomitant]
     Dosage: 1 D/F, UNK
  7. GLUCOBAY [Concomitant]
     Dosage: 1 D/F, 3/D
  8. FASTIC [Concomitant]
     Dosage: 90 MG, 3/D
  9. GASMOTIN [Concomitant]
     Dosage: 1 D/F, 3/D
  10. CALCIUM ACETATE [Concomitant]
     Dosage: 2 D/F, 3/D
  11. K-CONTIN CONTINUS [Concomitant]
     Dosage: 1 D/F, 2/D
  12. NEURONTIN [Concomitant]
     Dosage: 100 MG, 3/D

REACTIONS (7)
  - ASCITES [None]
  - BLOOD GLUCOSE INCREASED [None]
  - CARDIAC FAILURE [None]
  - DYSPNOEA [None]
  - FALL [None]
  - LOSS OF CONSCIOUSNESS [None]
  - SUDDEN CARDIAC DEATH [None]
